FAERS Safety Report 8331945-8 (Version None)
Quarter: 2012Q2

REPORT INFORMATION
  Report Type: 
  Country: None (occurrence: None)
  Receive Date: 20120502
  Receipt Date: 20120420
  Transmission Date: 20120825
  Serious: Yes (Hospitalization)
  Sender: FDA-Public Use
  Company Number: CO-ELI_LILLY_AND_COMPANY-CO201203000785

PATIENT
  Age: 57 Year
  Sex: Female

DRUGS (8)
  1. FORTEO [Suspect]
     Indication: OSTEOPOROSIS
     Dosage: 20 UG, QD
     Route: 058
     Dates: start: 20111101, end: 20111101
  2. PREDNISOLONE [Concomitant]
  3. ASPIRIN [Concomitant]
  4. CALCIUM +D                         /00188401/ [Concomitant]
     Indication: SUPPLEMENTATION THERAPY
  5. ARAVA [Concomitant]
  6. ACETAMINOPHEN [Concomitant]
  7. OMEPRAZOLE [Concomitant]
  8. LOVASTATIN [Concomitant]

REACTIONS (5)
  - ABDOMINAL PAIN UPPER [None]
  - DIZZINESS [None]
  - NAUSEA [None]
  - HEADACHE [None]
  - ARTHRALGIA [None]
